FAERS Safety Report 8299152-5 (Version None)
Quarter: 2012Q2

REPORT INFORMATION
  Report Type: 
  Country: None (occurrence: None)
  Receive Date: 20120416
  Receipt Date: 20120416
  Transmission Date: 20120825
  Serious: Yes (Other)
  Sender: FDA-Public Use
  Company Number: None

PATIENT
  Age: 53 Year
  Sex: Female

DRUGS (1)
  1. BENAZEPRIL HCL AND HYDROCHLOROTHIAZIDE [Suspect]
     Dates: start: 20101104, end: 20110202

REACTIONS (4)
  - JAUNDICE [None]
  - CHOLESTASIS [None]
  - HEPATIC STEATOSIS [None]
  - HEPATIC FIBROSIS [None]
